FAERS Safety Report 18625587 (Version 4)
Quarter: 2021Q4

REPORT INFORMATION
  Report Type: Spontaneous
  Country: US (occurrence: US)
  Receive Date: 20201216
  Receipt Date: 20211007
  Transmission Date: 20220303
  Serious: Yes (Hospitalization)
  Sender: FDA-Public Use
  Company Number: US-NOVARTISPH-NVSC2020US329127

PATIENT
  Sex: Male

DRUGS (3)
  1. ENTRESTO [Suspect]
     Active Substance: SACUBITRIL\VALSARTAN
     Indication: Product used for unknown indication
     Dosage: 50 MG, UNKNOWN (24/26 MG), FOR 3 MONTHS
     Route: 065
  2. ENTRESTO [Suspect]
     Active Substance: SACUBITRIL\VALSARTAN
     Dosage: 100 MG, UNKNOWN (49/51 MG), FOR ABOUT A MONTH
     Route: 065
  3. ENTRESTO [Suspect]
     Active Substance: SACUBITRIL\VALSARTAN
     Dosage: 200 MG, UNKNOWN (97/103 MG), FOR ABOUT 5 MONTHS
     Route: 065

REACTIONS (7)
  - Single functional kidney [Unknown]
  - Infection [Unknown]
  - Gait inability [Unknown]
  - Blood potassium decreased [Unknown]
  - Dyspnoea [Unknown]
  - Dizziness [Unknown]
  - Inappropriate schedule of product administration [Unknown]
